FAERS Safety Report 13346995 (Version 1)
Quarter: 2017Q1

REPORT INFORMATION
  Report Type: Spontaneous
  Country: US (occurrence: US)
  Receive Date: 20170317
  Receipt Date: 20170317
  Transmission Date: 20170428
  Serious: Yes (Other)
  Sender: FDA-Public Use
  Company Number: US-AMGEN-USASP2017037644

PATIENT
  Age: 58 Year
  Sex: Female

DRUGS (8)
  1. MORPHINE SULFATE. [Concomitant]
     Active Substance: MORPHINE SULFATE
     Dosage: UNK UNK, BID  (2 TABS AM AND 1 TAB PM)
     Route: 065
  2. LOSARTAN AND HYDROCHLOROTHIAZIDE [Concomitant]
     Active Substance: HYDROCHLOROTHIAZIDE\LOSARTAN POTASSIUM
     Dosage: 5012.5 MG, QD
     Route: 065
  3. ENBREL [Suspect]
     Active Substance: ETANERCEPT
     Dosage: 50 MG, QWK
     Route: 065
  4. METHOTREXATE. [Concomitant]
     Active Substance: METHOTREXATE
     Dosage: 2.5 MG, QWK (6 TABS EVERY WEEK)
     Route: 065
  5. CITRULLINE [Concomitant]
     Active Substance: CITRULLINE
     Dosage: 100 MG, QD
     Route: 065
  6. MORPHINE SULFATE. [Concomitant]
     Active Substance: MORPHINE SULFATE
     Dosage: UNK, AS NECESSARY 15 MG, (1/2 TAB AS NEEDED ONCE DAILY)
     Route: 065
  7. ENBREL [Suspect]
     Active Substance: ETANERCEPT
     Indication: RHEUMATOID ARTHRITIS
     Dosage: 25 MG, QWK
     Route: 065
  8. PRAVASTATIN. [Concomitant]
     Active Substance: PRAVASTATIN
     Dosage: 40 MG, QD
     Route: 065

REACTIONS (3)
  - Rheumatoid arthritis [Unknown]
  - Arthralgia [Unknown]
  - Off label use [Unknown]
